FAERS Safety Report 4672661-3 (Version None)
Quarter: 2005Q2

REPORT INFORMATION
  Report Type: 
  Country: None (occurrence: None)
  Receive Date: 20050524
  Receipt Date: 20050427
  Transmission Date: 20051028
  Serious: Yes (Life-Threatening, Hospitalization, Disabling)
  Sender: FDA-Public Use
  Company Number: US-MERCK-0504USA04882

PATIENT
  Age: 68 Year
  Sex: Female

DRUGS (18)
  1. SINGULAIR [Suspect]
     Indication: ASTHMA
     Route: 048
     Dates: start: 20041201, end: 20050201
  2. ZOCOR [Concomitant]
     Route: 065
  3. ACTOS [Concomitant]
     Route: 065
  4. AMARYL [Concomitant]
     Route: 065
  5. ZOLOFT [Concomitant]
     Route: 065
  6. XALATAN [Concomitant]
     Route: 065
  7. TOPROL-XL [Concomitant]
     Route: 065
  8. PLAVIX [Concomitant]
     Route: 065
  9. ASPIRIN [Concomitant]
     Route: 065
  10. LASIX [Concomitant]
     Route: 065
  11. IRON (UNSPECIFIED) [Concomitant]
     Route: 065
  12. LISINOPRIL [Concomitant]
     Route: 065
  13. NORVASC [Concomitant]
     Route: 065
  14. NITROGLYCERIN [Concomitant]
     Route: 065
  15. VALIUM [Concomitant]
     Route: 065
  16. [THERAPY UNSPECIFIED] [Concomitant]
     Route: 065
  17. TRUSOPT [Concomitant]
     Route: 047
  18. PATANOL [Concomitant]
     Route: 065

REACTIONS (4)
  - ANKLE FRACTURE [None]
  - CARDIAC FAILURE CONGESTIVE [None]
  - FALL [None]
  - PNEUMONIA [None]
